FAERS Safety Report 10602140 (Version 1)
Quarter: 2014Q4

REPORT INFORMATION
  Report Type: Spontaneous
  Country: US (occurrence: US)
  Receive Date: 20141124
  Receipt Date: 20141124
  Transmission Date: 20150529
  Serious: Yes (Hospitalization, Other)
  Sender: FDA-Public Use
  Company Number: US-BRISTOL-MYERS SQUIBB COMPANY-21606694

PATIENT
  Age: 90 Year
  Sex: Male
  Weight: 89 kg

DRUGS (11)
  1. PRESERVISION AREDS [Concomitant]
  2. TOPROL XL [Concomitant]
     Active Substance: METOPROLOL SUCCINATE
  3. CRESTOR [Concomitant]
     Active Substance: ROSUVASTATIN CALCIUM
  4. HYDRODIURIL [Concomitant]
     Active Substance: HYDROCHLOROTHIAZIDE
  5. COUMADIN [Suspect]
     Active Substance: WARFARIN SODIUM
     Indication: ATRIAL FIBRILLATION
     Dosage: LAST DOSE ON 11-DEC-2012
     Route: 048
  6. NITROSTAT [Concomitant]
     Active Substance: NITROGLYCERIN
  7. FISH OIL [Concomitant]
     Active Substance: FISH OIL
  8. MULTIVITAMINS [Concomitant]
     Active Substance: VITAMINS
  9. ASPIRIN. [Suspect]
     Active Substance: ASPIRIN
     Indication: PROPHYLAXIS
     Dosage: LAST DOSE ON 11-DEC-2012
     Route: 048
  10. OCUVITE [Concomitant]
     Active Substance: VITAMINS
  11. VITAMIN D [Concomitant]
     Active Substance: CHOLECALCIFEROL

REACTIONS (3)
  - Gastrointestinal tract adenoma [Recovered/Resolved]
  - Presyncope [Unknown]
  - Rectal haemorrhage [Recovered/Resolved]

NARRATIVE: CASE EVENT DATE: 201212
